FAERS Safety Report 9187083 (Version 3)
Quarter: 2013Q3

REPORT INFORMATION
  Report Type: Spontaneous
  Country: US (occurrence: US)
  Receive Date: 20121101
  Receipt Date: 20130816
  Transmission Date: 20140515
  Serious: Yes (Life-Threatening, Hospitalization, Other)
  Sender: FDA-Public Use
  Company Number: US-ELI_LILLY_AND_COMPANY-US201210008994

PATIENT
  Age: 72 Year
  Sex: Male
  Weight: 72.56 kg

DRUGS (7)
  1. HUMALOG LISPRO [Suspect]
     Dosage: UNK, PRN
  2. HUMALOG LISPRO [Suspect]
     Indication: TYPE 2 DIABETES MELLITUS
  3. PLAVIX [Concomitant]
  4. PREDNISONE [Concomitant]
  5. ASPIRIN [Concomitant]
  6. COUMADIN [Concomitant]
  7. NITROGLYCERIN [Concomitant]
     Dosage: UNK, PRN
     Route: 060

REACTIONS (12)
  - Cerebrovascular accident [Recovered/Resolved]
  - Subdural haematoma [Recovered/Resolved]
  - Myocardial infarction [Unknown]
  - Myocardial infarction [Unknown]
  - Chest pain [Unknown]
  - Chest pain [Unknown]
  - Haemorrhagic disorder [Not Recovered/Not Resolved]
  - Blood disorder [Not Recovered/Not Resolved]
  - Hypertension [Not Recovered/Not Resolved]
  - Haemochromatosis [Unknown]
  - Disorientation [Recovered/Resolved]
  - Blood glucose abnormal [Not Recovered/Not Resolved]
